FAERS Safety Report 4772894-1 (Version None)
Quarter: 2005Q3

REPORT INFORMATION
  Report Type: 
  Country: None (occurrence: None)
  Receive Date: 20050916
  Receipt Date: 20050906
  Transmission Date: 20060218
  Serious: Yes (Other)
  Sender: FDA-Public Use
  Company Number: 217502

PATIENT
  Age: 77 Year
  Sex: Female
  Weight: 40.2 kg

DRUGS (15)
  1. RITUXAN [Suspect]
     Indication: NON-HODGKIN'S LYMPHOMA
     Dosage: 500 MG, INTRAVENOUS
     Route: 042
     Dates: start: 20041125, end: 20050411
  2. ADRIAMYCIN PFS [Suspect]
     Indication: NON-HODGKIN'S LYMPHOMA
     Dosage: 40 MG, INTRAVENOUS
     Route: 042
     Dates: start: 20041013, end: 20050202
  3. CYCLOPHOSPHAMIDE [Suspect]
     Indication: NON-HODGKIN'S LYMPHOMA
     Dosage: 600 MG
     Dates: start: 20041013, end: 20050202
  4. ONCOVIN [Suspect]
     Indication: NON-HODGKIN'S LYMPHOMA
     Dosage: 1 MG, INTRAVENOUS
     Route: 042
     Dates: start: 20041013, end: 20050202
  5. PREDISOLONE [Suspect]
     Indication: NON-HODGKIN'S LYMPHOMA
     Dosage: 60 MG, INTRAVENOUS
     Route: 042
     Dates: start: 20041013, end: 20050202
  6. ACETAMINOPHEN [Concomitant]
  7. PREDISOLONE [Concomitant]
  8. ZADITEN [Concomitant]
  9. TOPOTECAN (TOPOTECAN HYDROCHLORIDE) [Concomitant]
  10. DIOVAN [Concomitant]
  11. FLUCONAZOLE [Concomitant]
  12. SULFAMETHOXAZOLE + TRIMETHOPRIM [Concomitant]
  13. ZANTAC [Concomitant]
  14. MARZULENE (SODIUM GUALENATE) [Concomitant]
  15. ALFACALCIDOL (ALFACALCIDOL) [Concomitant]

REACTIONS (6)
  - ANAEMIA [None]
  - NEUTROPHIL PERCENTAGE DECREASED [None]
  - NEUTROPHIL PERCENTAGE INCREASED [None]
  - PLATELET COUNT DECREASED [None]
  - PRURITUS [None]
  - WHITE BLOOD CELL COUNT DECREASED [None]
